FAERS Safety Report 22941963 (Version 15)
Quarter: 2025Q1

REPORT INFORMATION
  Report Type: Report from Study
  Country: CA (occurrence: CA)
  Receive Date: 20230914
  Receipt Date: 20250328
  Transmission Date: 20250408
  Serious: Yes (Hospitalization, Other)
  Sender: TAKEDA
  Company Number: CA-TAKEDA-2023TUS075013

PATIENT
  Age: 2 Year
  Sex: Female
  Weight: 9.97 kg

DRUGS (9)
  1. TEDUGLUTIDE [Suspect]
     Active Substance: TEDUGLUTIDE
     Indication: Short-bowel syndrome
     Dosage: 0.47 MILLIGRAM, QD
     Dates: start: 20230725
  2. TEDUGLUTIDE [Suspect]
     Active Substance: TEDUGLUTIDE
     Dosage: 0.47 MILLIGRAM, QD
  3. TEDUGLUTIDE [Suspect]
     Active Substance: TEDUGLUTIDE
     Dosage: 0.47 MILLIGRAM, QD
  4. TEDUGLUTIDE [Suspect]
     Active Substance: TEDUGLUTIDE
     Dosage: 0.6 MILLIGRAM, QD
  5. TEDUGLUTIDE [Suspect]
     Active Substance: TEDUGLUTIDE
     Dosage: 0.6 MILLIGRAM, QD
  6. TEDUGLUTIDE [Suspect]
     Active Substance: TEDUGLUTIDE
     Dosage: 0.7 MILLIGRAM, QD
  7. LOPERAMIDE [Concomitant]
     Active Substance: LOPERAMIDE
  8. VITAMIN D NOS [Concomitant]
     Active Substance: CHOLECALCIFEROL\ERGOCALCIFEROL
  9. OMEPRAZOLE [Concomitant]
     Active Substance: OMEPRAZOLE

REACTIONS (31)
  - Vascular device infection [Unknown]
  - Pyrexia [Recovering/Resolving]
  - Abnormal faeces [Recovering/Resolving]
  - Pneumonia [Unknown]
  - Abdominal distension [Recovering/Resolving]
  - Vitamin B12 deficiency [Unknown]
  - Faecal volume increased [Unknown]
  - Vitamin D decreased [Unknown]
  - Pallor [Not Recovered/Not Resolved]
  - Diarrhoea [Not Recovered/Not Resolved]
  - Increased appetite [Recovering/Resolving]
  - White blood cell count increased [Unknown]
  - Agitation [Unknown]
  - Faeces hard [Unknown]
  - Fear of injection [Unknown]
  - Blood iron decreased [Unknown]
  - Hunger [Unknown]
  - Weight decreased [Unknown]
  - Weight increased [Unknown]
  - Bowel movement irregularity [Unknown]
  - Hypophagia [Unknown]
  - Weight fluctuation [Unknown]
  - Product dose omission issue [Unknown]
  - Incorrect dose administered [Unknown]
  - Syringe issue [Unknown]
  - Acidosis [Unknown]
  - Sleep disorder [Unknown]
  - Vomiting [Unknown]
  - Decreased appetite [Unknown]
  - Nasopharyngitis [Unknown]
  - Cough [Not Recovered/Not Resolved]

NARRATIVE: CASE EVENT DATE: 20231031
